FAERS Safety Report 7505789-0 (Version None)
Quarter: 2011Q2

REPORT INFORMATION
  Report Type: 
  Country: None (occurrence: None)
  Receive Date: 20110526
  Receipt Date: 20110128
  Transmission Date: 20111010
  Serious: Yes (Hospitalization, Other)
  Sender: FDA-Public Use
  Company Number: US-BAYER-201039180NA

PATIENT
  Age: 28 Year
  Sex: Female
  Weight: 66 kg

DRUGS (8)
  1. YASMIN [Suspect]
     Indication: CONTRACEPTION
     Dosage: 1 DF, QD
     Route: 048
     Dates: start: 20030923, end: 20080101
  2. MULTI-VITAMINS [Concomitant]
  3. YAZ [Suspect]
     Indication: CONTRACEPTION
     Dosage: UNK
  4. MINOCYCLINE HCL [Concomitant]
  5. LEXAPRO [Concomitant]
     Dosage: UNK
     Dates: end: 20070411
  6. ALBUTEROL SULFATE AUTOHALER [Concomitant]
  7. SINGULAIR [Concomitant]
  8. DOXYCYCLINE [Concomitant]

REACTIONS (8)
  - CHOLECYSTITIS CHRONIC [None]
  - PAIN [None]
  - ASTHENIA [None]
  - SYNCOPE [None]
  - CONFUSIONAL STATE [None]
  - POSTURAL ORTHOSTATIC TACHYCARDIA SYNDROME [None]
  - HEADACHE [None]
  - HEAD INJURY [None]
